FAERS Safety Report 21039710 (Version 3)
Quarter: 2022Q3

REPORT INFORMATION
  Report Type: Spontaneous
  Country: CH (occurrence: CH)
  Receive Date: 20220704
  Receipt Date: 20220829
  Transmission Date: 20221027
  Serious: Yes (Hospitalization, Other)
  Sender: FDA-Public Use
  Company Number: None

PATIENT
  Age: 17 Year
  Sex: Male

DRUGS (18)
  1. PALIPERIDONE PALMITATE [Suspect]
     Active Substance: PALIPERIDONE PALMITATE
     Indication: Psychotic symptom
     Dosage: IN TOTAL
     Route: 030
     Dates: start: 20220513, end: 20220513
  2. PALIPERIDONE PALMITATE [Suspect]
     Active Substance: PALIPERIDONE PALMITATE
  3. PALIPERIDONE PALMITATE [Suspect]
     Active Substance: PALIPERIDONE PALMITATE
  4. INVEGA [Suspect]
     Active Substance: PALIPERIDONE
     Indication: Psychotic symptom
     Route: 048
     Dates: start: 20220516, end: 20220610
  5. RISPERDAL [Suspect]
     Active Substance: RISPERIDONE
     Indication: Psychotic symptom
     Route: 048
     Dates: start: 202204, end: 202204
  6. RISPERDAL [Suspect]
     Active Substance: RISPERIDONE
     Route: 048
     Dates: start: 202204, end: 202205
  7. CLOTHIAPINE [Suspect]
     Active Substance: CLOTHIAPINE
     Indication: Product used for unknown indication
     Route: 065
     Dates: start: 202204, end: 20220503
  8. CLOTHIAPINE [Suspect]
     Active Substance: CLOTHIAPINE
     Route: 065
     Dates: start: 20220606, end: 20220608
  9. CLOTHIAPINE [Suspect]
     Active Substance: CLOTHIAPINE
     Route: 065
     Dates: start: 20220513, end: 20220516
  10. AKINETON [Concomitant]
     Active Substance: BIPERIDEN HYDROCHLORIDE
     Route: 065
     Dates: start: 20220502, end: 202205
  11. AKINETON [Concomitant]
     Active Substance: BIPERIDEN HYDROCHLORIDE
     Route: 065
     Dates: start: 20220516
  12. AMISULPRIDE [Concomitant]
     Active Substance: AMISULPRIDE
     Dates: start: 202205
  13. QUETIAPINE [Concomitant]
     Active Substance: QUETIAPINE
     Dates: start: 202205, end: 202205
  14. SERTRALINE [Concomitant]
     Active Substance: SERTRALINE HYDROCHLORIDE
     Indication: Anxiety
     Dates: start: 202205, end: 202205
  15. SERTRALINE [Concomitant]
     Active Substance: SERTRALINE HYDROCHLORIDE
     Indication: Anxiety
     Dates: start: 20220601, end: 20220608
  16. GUANFACINE [Concomitant]
     Active Substance: GUANFACINE
     Dates: start: 202205, end: 202205
  17. OLANZAPINE [Concomitant]
     Active Substance: OLANZAPINE
     Dates: start: 202205, end: 202205
  18. LORAZEPAM [Concomitant]
     Active Substance: LORAZEPAM
     Indication: Agitation
     Dosage: DIMINUTION DE LA POSOLOGIE FIN MAI 2022
     Dates: start: 202205

REACTIONS (8)
  - Neuroleptic malignant syndrome [Not Recovered/Not Resolved]
  - Extrapyramidal disorder [Recovered/Resolved]
  - Toxic skin eruption [Unknown]
  - Antipsychotic drug level above therapeutic [Recovered/Resolved]
  - Insomnia [Unknown]
  - Delusion [Unknown]
  - Incoherent [Unknown]
  - Off label use [Unknown]

NARRATIVE: CASE EVENT DATE: 20220502
